FAERS Safety Report 8087364-5 (Version None)
Quarter: 2012Q1

REPORT INFORMATION
  Report Type: 
  Country: None (occurrence: None)
  Receive Date: 20120128
  Receipt Date: 20110506
  Transmission Date: 20120608
  Serious: No
  Sender: FDA-Public Use
  Company Number: US-ABBOTT-11P-163-0724142-00

PATIENT
  Age: 33 Year
  Sex: Female

DRUGS (3)
  1. IBUPROFEN [Concomitant]
     Indication: PAIN
     Dosage: PRN
  2. HUMIRA [Suspect]
     Indication: ANKYLOSING SPONDYLITIS
  3. THERAFLU [Concomitant]
     Indication: COUGH

REACTIONS (5)
  - OEDEMA PERIPHERAL [None]
  - MUSCLE STRAIN [None]
  - COUGH [None]
  - SNEEZING [None]
  - INJURY [None]
